FAERS Safety Report 4380255-2 (Version None)
Quarter: 2004Q2

REPORT INFORMATION
  Report Type: 
  Country: None (occurrence: None)
  Receive Date: 20040616
  Receipt Date: 20040616
  Transmission Date: 20050107
  Serious: Yes (Hospitalization)
  Sender: FDA-Public Use
  Company Number: None

PATIENT
  Sex: Female

DRUGS (1)
  1. WINRHO [Suspect]
     Indication: THROMBOCYTOPENIA
     Dosage: 4850 MG IV X 1
     Route: 042

REACTIONS (2)
  - HEPATIC ENZYME INCREASED [None]
  - RENAL FAILURE ACUTE [None]
